FAERS Safety Report 9261660 (Version 2)
Quarter: 2013Q2

REPORT INFORMATION
  Report Type: Spontaneous
  Country: FR (occurrence: FR)
  Receive Date: 20130429
  Receipt Date: 20130505
  Transmission Date: 20140414
  Serious: Yes (Hospitalization)
  Sender: FDA-Public Use
  Company Number: FR-B.I. PHARMACEUTICALS,INC./RIDGEFIELD-2013-FF-01214FF

PATIENT
  Age: 79 Year
  Sex: Male

DRUGS (2)
  1. MECIR [Suspect]
     Indication: PROSTATIC ADENOMA
     Dosage: 0.4 MG
     Route: 048
     Dates: start: 20121226, end: 20130213
  2. AUGMENTIN [Suspect]
     Indication: LUNG DISORDER
     Dosage: 3 G
     Dates: start: 20121221, end: 20130106

REACTIONS (1)
  - Hepatitis [Not Recovered/Not Resolved]
